FAERS Safety Report 5283470-9 (Version None)
Quarter: 2007Q2

REPORT INFORMATION
  Report Type: 
  Country: None (occurrence: None)
  Receive Date: 20070402
  Receipt Date: 20070322
  Transmission Date: 20071010
  Serious: Yes (Hospitalization)
  Sender: FDA-Public Use
  Company Number: US-MERCK-0703USA04564

PATIENT

DRUGS (1)
  1. INVANZ [Suspect]
     Indication: BACTERIAL INFECTION
     Route: 042

REACTIONS (1)
  - LIVER FUNCTION TEST ABNORMAL [None]
